FAERS Safety Report 5484395-6 (Version None)
Quarter: 2007Q4

REPORT INFORMATION
  Report Type: 
  Country: None (occurrence: None)
  Receive Date: 20071012
  Receipt Date: 20071011
  Transmission Date: 20080405
  Serious: Yes (Life-Threatening, Hospitalization)
  Sender: FDA-Public Use
  Company Number: GU-MERCK-0710USA02680

PATIENT
  Age: 69 Year
  Sex: Male
  Weight: 70 kg

DRUGS (3)
  1. JANUVIA [Suspect]
     Route: 048
  2. COUMADIN [Concomitant]
     Indication: ATRIAL FIBRILLATION
     Route: 065
  3. GLUCOPHAGE [Concomitant]
     Route: 065

REACTIONS (2)
  - ACUTE PSYCHOSIS [None]
  - HALLUCINATION, VISUAL [None]
